FAERS Safety Report 22015252 (Version 3)
Quarter: 2023Q2

REPORT INFORMATION
  Report Type: Spontaneous
  Country: US (occurrence: US)
  Receive Date: 20230221
  Receipt Date: 20230531
  Transmission Date: 20230721
  Serious: No
  Sender: FDA-Public Use
  Company Number: US-SA-SAC20230220000291

PATIENT
  Age: 1 Year
  Sex: Male

DRUGS (4)
  1. DUPIXENT [Suspect]
     Active Substance: DUPILUMAB
     Indication: Dermatitis diaper
     Dosage: 200 MG, Q4W
     Route: 058
     Dates: start: 202212
  2. DUPIXENT [Suspect]
     Active Substance: DUPILUMAB
     Indication: Dermatitis atopic
  3. DUPIXENT [Suspect]
     Active Substance: DUPILUMAB
     Indication: Hormone replacement therapy
  4. DUPIXENT [Suspect]
     Active Substance: DUPILUMAB
     Indication: Drug therapy

REACTIONS (11)
  - Illness [Recovering/Resolving]
  - Ocular hyperaemia [Unknown]
  - Eye swelling [Unknown]
  - Erythema of eyelid [Unknown]
  - Eyelids pruritus [Unknown]
  - Swelling of eyelid [Unknown]
  - Eye pruritus [Unknown]
  - Conjunctivitis [Unknown]
  - Blepharitis [Unknown]
  - Eye inflammation [Unknown]
  - Product use in unapproved indication [Unknown]

NARRATIVE: CASE EVENT DATE: 20221201
